FAERS Safety Report 19943869 (Version 1)
Quarter: 2021Q4

REPORT INFORMATION
  Report Type: Other
  Country: IN (occurrence: IN)
  Receive Date: 20211012
  Receipt Date: 20211012
  Transmission Date: 20220304
  Serious: Yes (Other)
  Sender: FDA-Public Use
  Company Number: IN-ROCHE-2930116

PATIENT

DRUGS (26)
  1. RITUXIMAB [Suspect]
     Active Substance: RITUXIMAB
     Indication: Neoplasm malignant
     Route: 065
  2. CAPECITABINE [Suspect]
     Active Substance: CAPECITABINE
     Indication: Neoplasm malignant
     Route: 065
  3. PACLITAXEL [Suspect]
     Active Substance: PACLITAXEL
     Indication: Neoplasm malignant
     Route: 065
  4. CARBOPLATIN [Suspect]
     Active Substance: CARBOPLATIN
     Indication: Neoplasm malignant
     Route: 065
  5. CISPLATIN [Suspect]
     Active Substance: CISPLATIN
     Indication: Neoplasm malignant
     Route: 065
  6. ETOPOSIDE [Suspect]
     Active Substance: ETOPOSIDE
     Indication: Neoplasm malignant
     Route: 065
  7. BLEOMYCIN [Suspect]
     Active Substance: BLEOMYCIN SULFATE
     Indication: Neoplasm malignant
     Route: 065
  8. IFOSFAMIDE [Suspect]
     Active Substance: IFOSFAMIDE
     Indication: Neoplasm malignant
     Route: 065
  9. DOXORUBICIN [Suspect]
     Active Substance: DOXORUBICIN
     Indication: Neoplasm malignant
     Route: 065
  10. CYCLOPHOSPHAMIDE [Suspect]
     Active Substance: CYCLOPHOSPHAMIDE
     Indication: Neoplasm malignant
     Route: 065
  11. GEMCITABINE [Suspect]
     Active Substance: GEMCITABINE
     Indication: Neoplasm malignant
     Route: 065
  12. FLUOROURACIL [Suspect]
     Active Substance: FLUOROURACIL
     Indication: Neoplasm malignant
     Route: 065
  13. DOCETAXEL [Suspect]
     Active Substance: DOCETAXEL
     Indication: Neoplasm malignant
     Route: 065
  14. VINBLASTINE [Suspect]
     Active Substance: VINBLASTINE
     Indication: Neoplasm malignant
     Route: 065
  15. DACARBAZINE [Suspect]
     Active Substance: DACARBAZINE
     Indication: Neoplasm malignant
     Route: 065
  16. VINCRISTINE [Suspect]
     Active Substance: VINCRISTINE
     Indication: Neoplasm malignant
     Route: 065
  17. PREDNISOLONE [Suspect]
     Active Substance: PREDNISOLONE
     Indication: Neoplasm malignant
     Route: 065
  18. PEMETREXED [Suspect]
     Active Substance: PEMETREXED
     Indication: Neoplasm malignant
     Route: 065
  19. IRINOTECAN [Suspect]
     Active Substance: IRINOTECAN
     Indication: Neoplasm malignant
     Route: 065
  20. LEUCOVORIN CALCIUM [Suspect]
     Active Substance: LEUCOVORIN CALCIUM
     Indication: Neoplasm malignant
     Route: 065
  21. EPIRUBICIN [Suspect]
     Active Substance: EPIRUBICIN
     Indication: Neoplasm malignant
     Route: 065
  22. BICALUTAMIDE [Suspect]
     Active Substance: BICALUTAMIDE
     Indication: Neoplasm malignant
     Route: 065
  23. ZOLEDRONIC ACID [Suspect]
     Active Substance: ZOLEDRONIC ACID
     Indication: Neoplasm malignant
     Route: 065
  24. METHOTREXATE [Suspect]
     Active Substance: METHOTREXATE
     Indication: Neoplasm malignant
     Route: 065
  25. OXALIPLATIN [Suspect]
     Active Substance: OXALIPLATIN
     Indication: Neoplasm malignant
     Route: 065
  26. BENDAMUSTINE [Suspect]
     Active Substance: BENDAMUSTINE
     Indication: Neoplasm malignant
     Route: 065

REACTIONS (32)
  - Pancytopenia [Unknown]
  - Neutropenia [Unknown]
  - Deafness [Unknown]
  - Thrombocytopenia [Unknown]
  - Anaemia [Unknown]
  - Leukopenia [Unknown]
  - Alopecia [Unknown]
  - Nausea [Unknown]
  - Vomiting [Unknown]
  - Nail pigmentation [Unknown]
  - Neuropathy peripheral [Unknown]
  - Arthralgia [Unknown]
  - Myalgia [Unknown]
  - Diarrhoea [Unknown]
  - Chromaturia [Unknown]
  - Mouth ulceration [Unknown]
  - Pyrexia [Unknown]
  - Paraesthesia [Unknown]
  - Diarrhoea [Unknown]
  - Constipation [Unknown]
  - Hypersensitivity [Unknown]
  - Gastritis [Unknown]
  - Palmar-plantar erythrodysaesthesia syndrome [Unknown]
  - Cough [Unknown]
  - Fatigue [Unknown]
  - Hiccups [Unknown]
  - Neuropathy peripheral [Unknown]
  - Hepatic enzyme increased [Unknown]
  - Dyspnoea [Unknown]
  - Nephropathy toxic [Unknown]
  - Hyponatraemia [Unknown]
  - Influenza like illness [Unknown]
